FAERS Safety Report 17375145 (Version 1)
Quarter: 2020Q1

REPORT INFORMATION
  Report Type: Spontaneous
  Country: US (occurrence: US)
  Receive Date: 20200121
  Receipt Date: 20200121
  Transmission Date: 20200409
  Serious: No
  Sender: FDA-Public Use
  Company Number: None

PATIENT
  Age: 81 Year
  Sex: Male

DRUGS (1)
  1. RANITIDINE (RANITIDINE HCL 150MG TAB) [Suspect]
     Active Substance: RANITIDINE HYDROCHLORIDE
     Indication: GASTROOESOPHAGEAL REFLUX DISEASE
     Dates: start: 20190918, end: 20190924

REACTIONS (2)
  - Nightmare [None]
  - Anxiety [None]

NARRATIVE: CASE EVENT DATE: 20191015
